FAERS Safety Report 5103545-4 (Version None)
Quarter: 2006Q3

REPORT INFORMATION
  Report Type: 
  Country: None (occurrence: None)
  Receive Date: 20060731
  Receipt Date: 20051115
  Transmission Date: 20061208
  Serious: Yes (Other)
  Sender: FDA-Public Use
  Company Number: US-JNJFOC-20051001614

PATIENT
  Age: 49 Year
  Sex: Male

DRUGS (1)
  1. RISPERDAL CONSTA [Suspect]
     Indication: SCHIZOPHRENIA
     Dosage: 50 MG, INTRAMUSCULAR
     Route: 030
     Dates: start: 20050721, end: 20050927

REACTIONS (1)
  - PRIAPISM [None]
